FAERS Safety Report 7732243-3 (Version None)
Quarter: 2011Q3

REPORT INFORMATION
  Report Type: 
  Country: None (occurrence: None)
  Receive Date: 20110906
  Receipt Date: 20110818
  Transmission Date: 20111222
  Serious: Yes (Other)
  Sender: FDA-Public Use
  Company Number: US-AMGEN-USASP2011032899

PATIENT
  Age: 62 Year
  Sex: Female

DRUGS (3)
  1. CALCIUM CARBONATE [Concomitant]
  2. VITAMIN D [Concomitant]
     Dosage: 5000 IU, UNK
  3. PROLIA [Suspect]
     Indication: OSTEOPOROSIS POSTMENOPAUSAL
     Dosage: 60 MG, Q6MO
     Dates: start: 20110509

REACTIONS (6)
  - HYPOCALCAEMIA [None]
  - MYALGIA [None]
  - OROPHARYNGEAL PAIN [None]
  - GLOSSODYNIA [None]
  - BONE PAIN [None]
  - MUSCLE SPASMS [None]
